FAERS Safety Report 17774696 (Version 1)
Quarter: 2020Q2

REPORT INFORMATION
  Report Type: Spontaneous
  Country: US (occurrence: US)
  Receive Date: 20200512
  Receipt Date: 20200512
  Transmission Date: 20200714
  Serious: Yes (Hospitalization)
  Sender: FDA-Public Use
  Company Number: None

PATIENT
  Age: 59 Year
  Sex: Female

DRUGS (13)
  1. ARIPIPRAZOLE. [Concomitant]
     Active Substance: ARIPIPRAZOLE
  2. SPIRONOLACT [Concomitant]
     Active Substance: SPIRONOLACTONE
  3. DULOXETINE. [Concomitant]
     Active Substance: DULOXETINE
  4. CYANOCOBALAM [Concomitant]
     Active Substance: CYANOCOBALAMIN
  5. CETIRIZINE [Concomitant]
     Active Substance: CETIRIZINE HYDROCHLORIDE
  6. APAP [Concomitant]
     Active Substance: ACETAMINOPHEN
  7. XOLAIR [Suspect]
     Active Substance: OMALIZUMAB
     Dosage: ?          OTHER DOSE:150 MG SDV;OTHER FREQUENCY:300MG PER4; SUBCUTANEOUS INJECTION?
     Route: 058
     Dates: start: 20180301
  8. MONTELUKAST [Concomitant]
     Active Substance: MONTELUKAST SODIUM
  9. TYLENOL [Concomitant]
     Active Substance: ACETAMINOPHEN
  10. ONDANSETRON [Concomitant]
     Active Substance: ONDANSETRON
  11. OXYCOD [Concomitant]
  12. ACCU-CHECK TES AVIVA PL [Concomitant]
  13. WIXELA INHUB [Concomitant]
     Active Substance: FLUTICASONE PROPIONATE\SALMETEROL XINAFOATE

REACTIONS (2)
  - Peripheral swelling [None]
  - Intestinal obstruction [None]

NARRATIVE: CASE EVENT DATE: 20200507
